FAERS Safety Report 4915141-X (Version None)
Quarter: 2006Q1

REPORT INFORMATION
  Report Type: 
  Country: None (occurrence: None)
  Receive Date: 20060113
  Receipt Date: 20051026
  Transmission Date: 20060701
  Serious: No
  Sender: FDA-Public Use
  Company Number: 2005SP003679

PATIENT
  Age: 56 Year
  Sex: Female
  Weight: 80.7403 kg

DRUGS (7)
  1. LUNESTA [Suspect]
     Indication: INITIAL INSOMNIA
     Dosage: 3 MG;HS;ORAL ; 3 MG;B1W;ORAL
     Route: 048
     Dates: start: 20051001, end: 20051001
  2. LUNESTA [Suspect]
     Indication: INITIAL INSOMNIA
     Dosage: 3 MG;HS;ORAL ; 3 MG;B1W;ORAL
     Route: 048
     Dates: start: 20051001
  3. GLUCOVANCE [Concomitant]
  4. PIOGLITAZONE HCL [Concomitant]
  5. ATORVASTATIN CALCIUM [Concomitant]
  6. ACTONEL [Concomitant]
  7. VITAMIN E [Concomitant]

REACTIONS (2)
  - ALOPECIA [None]
  - PRURITUS [None]
